FAERS Safety Report 14037927 (Version 3)
Quarter: 2018Q2

REPORT INFORMATION
  Report Type: Spontaneous
  Country: FR (occurrence: FR)
  Receive Date: 20171004
  Receipt Date: 20180625
  Transmission Date: 20180711
  Serious: Yes (Other)
  Sender: FDA-Public Use
  Company Number: FR-SUN PHARMACEUTICAL INDUSTRIES LTD-2017RR-151320

PATIENT

DRUGS (6)
  1. AMIODARONE [Suspect]
     Active Substance: AMIODARONE
     Indication: FOETAL EXPOSURE DURING PREGNANCY
  2. DIGOXIN. [Suspect]
     Active Substance: DIGOXIN
     Indication: TACHYCARDIA FOETAL
     Dosage: MATERNAL DOSE: 0.25 MG, TID
     Route: 064
  3. DIGOXIN. [Suspect]
     Active Substance: DIGOXIN
     Indication: FOETAL EXPOSURE DURING PREGNANCY
  4. DIGOXIN. [Suspect]
     Active Substance: DIGOXIN
     Indication: HYDROPS FOETALIS
  5. AMIODARONE [Suspect]
     Active Substance: AMIODARONE
     Indication: HYDROPS FOETALIS
     Dosage: MATERNAL DOSE: 600 MG, TID
     Route: 064
  6. AMIODARONE [Suspect]
     Active Substance: AMIODARONE
     Indication: TACHYCARDIA FOETAL
     Dosage: 200 MG, DAILY
     Route: 064

REACTIONS (4)
  - Hydrops foetalis [Unknown]
  - Foetal exposure during pregnancy [Unknown]
  - Condition aggravated [Recovered/Resolved]
  - Tachycardia foetal [Unknown]
